FAERS Safety Report 15231301 (Version 2)
Quarter: 2019Q4

REPORT INFORMATION
  Report Type: Spontaneous
  Country: US (occurrence: US)
  Receive Date: 20180802
  Receipt Date: 20191112
  Transmission Date: 20200122
  Serious: No
  Sender: FDA-Public Use
  Company Number: US-VERTEX PHARMACEUTICALS-2018-005330

PATIENT
  Sex: Female

DRUGS (7)
  1. IMIPENEM [Concomitant]
     Active Substance: IMIPENEM
  2. SYMDEKO [Suspect]
     Active Substance: IVACAFTOR\TEZACAFTOR
     Dosage: 100MG TEZACAFTOR/150MG IVACAFTOR AM; 150MG IVACAFTOR PM
     Route: 048
     Dates: start: 2018, end: 201807
  3. CLARITHROMYCIN. [Concomitant]
     Active Substance: CLARITHROMYCIN
  4. ZYVOX [Concomitant]
     Active Substance: LINEZOLID
  5. CAYSTON [Concomitant]
     Active Substance: AZTREONAM
  6. BIAXIN [Concomitant]
     Active Substance: CLARITHROMYCIN
  7. SYMDEKO [Suspect]
     Active Substance: IVACAFTOR\TEZACAFTOR
     Indication: CYSTIC FIBROSIS
     Dosage: REDUCED DOSE
     Route: 048
     Dates: start: 20180316, end: 2018

REACTIONS (4)
  - Feeling abnormal [Unknown]
  - Depression [Unknown]
  - Anxiety [Unknown]
  - Amnesia [Unknown]

NARRATIVE: CASE EVENT DATE: 2018
